FAERS Safety Report 7014874-1 (Version None)
Quarter: 2010Q3

REPORT INFORMATION
  Report Type: 
  Country: None (occurrence: None)
  Receive Date: 20100927
  Receipt Date: 20091127
  Transmission Date: 20110219
  Serious: No
  Sender: FDA-Public Use
  Company Number: US-ASTRAZENECA-2009SE29493

PATIENT
  Age: 914 Month
  Sex: Female
  Weight: 56.7 kg

DRUGS (1)
  1. ARIMIDEX [Suspect]
     Indication: NEOPLASM MALIGNANT
     Route: 048
     Dates: start: 20091001, end: 20091112

REACTIONS (3)
  - CHROMATURIA [None]
  - DYSPNOEA [None]
  - OEDEMA PERIPHERAL [None]
